FAERS Safety Report 5661412-1 (Version None)
Quarter: 2008Q1

REPORT INFORMATION
  Report Type: 
  Country: None (occurrence: None)
  Receive Date: 20080311
  Receipt Date: 20080228
  Transmission Date: 20080703
  Serious: Yes (Other)
  Sender: FDA-Public Use
  Company Number: US-ELI_LILLY_AND_COMPANY-US200802006936

PATIENT
  Age: 35 Year
  Sex: Female

DRUGS (1)
  1. CYMBALTA [Suspect]
     Dosage: 30 MG, UNK
     Dates: start: 20071112, end: 20080110

REACTIONS (2)
  - GRAND MAL CONVULSION [None]
  - MIGRAINE [None]
